FAERS Safety Report 5276658-4 (Version None)
Quarter: 2007Q1

REPORT INFORMATION
  Report Type: 
  Country: None (occurrence: None)
  Receive Date: 20070327
  Receipt Date: 20070326
  Transmission Date: 20070707
  Serious: Yes (Hospitalization)
  Sender: FDA-Public Use
  Company Number: FR-BRISTOL-MYERS SQUIBB COMPANY-13727003

PATIENT
  Age: 71 Year
  Sex: Male

DRUGS (6)
  1. CISPLATIN [Suspect]
     Indication: GASTRIC CANCER
     Route: 042
     Dates: start: 20060220, end: 20060220
  2. S-1 [Suspect]
     Indication: GASTRIC CANCER
     Route: 048
     Dates: start: 20060220, end: 20060222
  3. MORPHINE SULFATE [Concomitant]
     Indication: ABDOMINAL PAIN
     Route: 048
     Dates: start: 20060216
  4. OMEPRAZOLE [Concomitant]
     Indication: PROPHYLAXIS
     Route: 048
     Dates: start: 19960101
  5. ESBERIVEN [Concomitant]
     Indication: VARICOSE VEIN
     Route: 048
     Dates: start: 20000101
  6. COZAAR [Concomitant]
     Indication: HYPERTENSION
     Route: 048
     Dates: start: 20050101

REACTIONS (1)
  - GASTRIC HAEMORRHAGE [None]
